FAERS Safety Report 10708722 (Version 1)
Quarter: 2015Q1

REPORT INFORMATION
  Report Type: Spontaneous
  Country: US (occurrence: US)
  Receive Date: 20150113
  Receipt Date: 20150113
  Transmission Date: 20150721
  Serious: No
  Sender: FDA-Public Use
  Company Number: US-TEVA-532681USA

PATIENT
  Age: 53 Year
  Sex: Female

DRUGS (1)
  1. COPAXONE [Suspect]
     Active Substance: GLATIRAMER ACETATE
     Indication: MULTIPLE SCLEROSIS
     Dates: start: 19981001

REACTIONS (3)
  - Injection site atrophy [Not Recovered/Not Resolved]
  - Influenza [Not Recovered/Not Resolved]
  - Injection site fibrosis [Not Recovered/Not Resolved]

NARRATIVE: CASE EVENT DATE: 20150101
